FAERS Safety Report 8245428-7 (Version None)
Quarter: 2012Q1

REPORT INFORMATION
  Report Type: 
  Country: None (occurrence: None)
  Receive Date: 20120329
  Receipt Date: 20120314
  Transmission Date: 20120608
  Serious: Yes (Other)
  Sender: FDA-Public Use
  Company Number: US-WATSON-2012-05173

PATIENT

DRUGS (1)
  1. IBUPROFEN [Suspect]
     Indication: PRODUCT USED FOR UNKNOWN INDICATION
     Dosage: UNK
     Route: 065

REACTIONS (3)
  - HEPATITIS CHOLESTATIC [None]
  - VANISHING BILE DUCT SYNDROME [None]
  - BILIARY TRACT DISORDER [None]
